FAERS Safety Report 10075687 (Version 2)
Quarter: 2014Q2

REPORT INFORMATION
  Report Type: Report from Study
  Country: JP (occurrence: JP)
  Receive Date: 20140414
  Receipt Date: 20140527
  Transmission Date: 20141212
  Serious: Yes (Hospitalization)
  Sender: FDA-Public Use
  Company Number: JP-UCBSA-118048

PATIENT
  Age: 76 Year
  Sex: Female
  Weight: 40.1 kg

DRUGS (11)
  1. CIMZIA [Suspect]
     Indication: RHEUMATOID ARTHRITIS
     Dosage: SYRINGE
     Route: 058
     Dates: start: 20140204, end: 20140302
  2. CELECOX [Concomitant]
     Route: 048
  3. LOXONIN [Concomitant]
     Route: 048
     Dates: start: 20140211, end: 20140215
  4. EVISTA [Concomitant]
     Route: 048
     Dates: end: 20140303
  5. MICARDIS [Concomitant]
     Route: 048
  6. EPADEL [Concomitant]
     Route: 048
  7. OPALMON [Concomitant]
     Route: 048
  8. TAKEPRON [Concomitant]
     Route: 048
  9. METHYCOBAL [Concomitant]
     Route: 048
  10. ARICEPT [Concomitant]
     Route: 048
  11. CEFCAPENE PIVOXIL HYDROCHLORIDE [Concomitant]
     Indication: CONTUSION
     Dosage: 300 MG/DAY
     Dates: start: 20140211, end: 20140215

REACTIONS (3)
  - Pyelonephritis [Recovering/Resolving]
  - Anaemia [Not Recovered/Not Resolved]
  - Contusion [Recovered/Resolved]
